FAERS Safety Report 6145602-X (Version None)
Quarter: 2009Q2

REPORT INFORMATION
  Report Type: 
  Country: None (occurrence: None)
  Receive Date: 20090407
  Receipt Date: 20090330
  Transmission Date: 20091009
  Serious: Yes (Other)
  Sender: FDA-Public Use
  Company Number: IT-TEVA-190043ISR

PATIENT
  Age: 64 Year
  Sex: Female

DRUGS (2)
  1. PAROXETINE HCL [Suspect]
     Indication: DEPRESSION
     Route: 048
     Dates: start: 20080120, end: 20080220
  2. LORMETAZEPAM [Concomitant]

REACTIONS (2)
  - LABYRINTHITIS [None]
  - VERTIGO [None]
